FAERS Safety Report 11386915 (Version 9)
Quarter: 2021Q1

REPORT INFORMATION
  Report Type: Spontaneous
  Country: US (occurrence: US)
  Receive Date: 20150817
  Receipt Date: 20210209
  Transmission Date: 20210419
  Serious: No
  Sender: FDA-Public Use
  Company Number: US-PFIZER INC-2015269851

PATIENT
  Age: 50 Year
  Sex: Female

DRUGS (3)
  1. LYRICA [Suspect]
     Active Substance: PREGABALIN
     Dosage: 300 MG, DAILY (2 CAPS PER ORAL EVERY MORNING, 1 CAP PER ORAL MID DAY, 1 CAP PER ORAL IN THE EVENING)
     Route: 048
  2. LYRICA [Suspect]
     Active Substance: PREGABALIN
     Indication: FIBROMYALGIA
     Dosage: 450 MG, DAILY (1 TABLET,BY MOUTH 6 TIMES A DAY/75MGX6=540 FOR 3MONTH)(75MGX6)
     Route: 048
  3. LYRICA [Suspect]
     Active Substance: PREGABALIN
     Dosage: 150 MG, DAILY(2 CAP PER ORAL EVERY HS (BED TIME))
     Route: 048

REACTIONS (1)
  - No adverse event [Unknown]
